FAERS Safety Report 8435365-7 (Version None)
Quarter: 2012Q2

REPORT INFORMATION
  Report Type: 
  Country: None (occurrence: None)
  Receive Date: 20120614
  Receipt Date: 20120607
  Transmission Date: 20120825
  Serious: No
  Sender: FDA-Public Use
  Company Number: US-ROXANE LABORATORIES, INC.-2012-RO-01195RO

PATIENT
  Age: 70 Year
  Sex: Female

DRUGS (5)
  1. MAGNESIUM [Concomitant]
  2. PRILOSEC [Concomitant]
  3. FUROSEMIDE [Suspect]
     Indication: OEDEMA
     Dosage: 20 MG
     Route: 048
  4. DILTIAZEM [Concomitant]
     Indication: ATRIAL FIBRILLATION
     Dosage: 240 MG
  5. POTASSIUM [Concomitant]
     Dosage: 10 MEQ

REACTIONS (1)
  - DRUG INEFFECTIVE [None]
